FAERS Safety Report 8865105 (Version 1)
Quarter: 2012Q4

REPORT INFORMATION
  Report Type: 
  Country: US (occurrence: US)
  Receive Date: 20121024
  Receipt Date: 20121024
  Transmission Date: 20130627
  Serious: No
  Sender: FDA-Public Use
  Company Number: US-AMGEN-USASP2012001164

PATIENT
  Age: 55 Year
  Sex: Female
  Weight: 100.68 kg

DRUGS (26)
  1. ENBREL [Suspect]
     Indication: PRODUCT USED FOR UNKNOWN INDICATION
     Dosage: 50 mg, qwk
     Route: 058
  2. DEPO-PROVERA [Concomitant]
     Dosage: 400/ml
  3. PREDNISONE [Concomitant]
     Dosage: 1 mg, UNK
  4. NORVASC [Concomitant]
     Dosage: 5 mg, UNK
  5. LYRICA [Concomitant]
     Dosage: 25 mg, UNK
  6. VICODIN [Concomitant]
     Dosage: 5-500 mg
  7. TRILIPIX [Concomitant]
     Dosage: 45 mg, UNK
  8. DIOVAN [Concomitant]
     Dosage: 40 mg, UNK
  9. ZADITOR [Concomitant]
     Dosage: 0.025 %, UNK
     Route: 047
  10. ALLEGRA [Concomitant]
     Dosage: 60 mg, UNK
  11. METFORMIN [Concomitant]
     Dosage: 500 mg, UNK
  12. GLIMEPIRIDE [Concomitant]
     Dosage: 1 mg, UNK
  13. LEVEMIR [Concomitant]
     Dosage: UNK
  14. CITRACAL [Concomitant]
     Dosage: UNK
  15. VITAMIN D [Concomitant]
     Dosage: 50000 unit, UNK
  16. CLONIDINE [Concomitant]
     Dosage: 0.1 mg, UNK
  17. PREVACID [Concomitant]
     Dosage: 15 mg, UNK
  18. ASPIRIN [Concomitant]
     Dosage: 81 mg, UNK
  19. MIRAPEX [Concomitant]
     Dosage: 0.5 mg, UNK
  20. NIACIN [Concomitant]
     Dosage: 125 mg, UNK
  21. COQ-10 [Concomitant]
     Dosage: UNK
  22. FISH OIL [Concomitant]
     Dosage: UNK
  23. GOTU KOLA [Concomitant]
     Dosage: 435 mg, UNK
  24. CREATINE [Concomitant]
  25. FERROUS GLUCEPTATE [Concomitant]
     Dosage: 28 mg, UNK
  26. WOM [Concomitant]
     Dosage: once daily

REACTIONS (3)
  - Vitamin D deficiency [Unknown]
  - Anaemia [Unknown]
  - Pneumonia [Unknown]
